FAERS Safety Report 20430162 (Version 1)
Quarter: 2022Q1

REPORT INFORMATION
  Report Type: Report from Study
  Country: FR (occurrence: FR)
  Receive Date: 20220204
  Receipt Date: 20220204
  Transmission Date: 20220424
  Serious: Yes (Hospitalization)
  Sender: FDA-Public Use
  Company Number: FR-SERVIER-S19013087

PATIENT

DRUGS (10)
  1. PEGASPARGASE [Suspect]
     Active Substance: PEGASPARGASE
     Indication: Acute lymphocytic leukaemia
     Dosage: 1725 IU, QD ON D4
     Route: 042
     Dates: start: 20191003
  2. VINCRISTINE [Suspect]
     Active Substance: VINCRISTINE
     Indication: Acute lymphocytic leukaemia
     Dosage: 1 MG ON D1, D8, D15, D22
     Route: 042
     Dates: start: 20190930, end: 20191021
  3. DOXORUBICIN [Suspect]
     Active Substance: DOXORUBICIN
     Indication: Acute lymphocytic leukaemia
     Dosage: 21 MG, ON D1, D8, D15, D22
     Route: 042
     Dates: start: 20190930, end: 20191021
  4. THIOGUANINE [Suspect]
     Active Substance: THIOGUANINE
     Indication: Acute lymphocytic leukaemia
     Dosage: 40 MG, QD FROM D29 TO D42
     Route: 048
     Dates: start: 20191105, end: 20191119
  5. CYTARABINE [Suspect]
     Active Substance: CYTARABINE
     Indication: Acute lymphocytic leukaemia
     Dosage: 30 MG ON D4, D31
     Route: 037
     Dates: start: 20191003, end: 20191107
  6. CYTARABINE [Suspect]
     Active Substance: CYTARABINE
     Dosage: 52.5 MG QD FROM D31 TO D34 AND FROM D38 TO D41
     Route: 042
     Dates: start: 20191107, end: 20191117
  7. CYCLOPHOSPHAMIDE [Suspect]
     Active Substance: CYCLOPHOSPHAMIDE
     Indication: Acute lymphocytic leukaemia
     Dosage: 7.2 MG ON D29
     Route: 042
     Dates: start: 20191105, end: 20191105
  8. TN UNSPECIFIED [Concomitant]
     Indication: Acute lymphocytic leukaemia
     Dosage: 12 MG ON D4, D31
     Route: 037
     Dates: start: 20191003, end: 20191107
  9. TN UNSPECIFIED [Concomitant]
     Indication: Acute lymphocytic leukaemia
     Dosage: 15.2 MG ON D4, D31
     Route: 037
     Dates: start: 20191003, end: 20191107
  10. TN UNSPECIFIED [Concomitant]
     Indication: Acute lymphocytic leukaemia
     Dosage: 7 MG, QD FROM D1 TO D7 AND FROM D15 TO D21
     Route: 048
     Dates: start: 20190930, end: 20191020

REACTIONS (3)
  - Febrile bone marrow aplasia [Recovered/Resolved]
  - Pyelonephritis [Recovered/Resolved]
  - Venoocclusive disease [Recovered/Resolved]

NARRATIVE: CASE EVENT DATE: 20191120
